FAERS Safety Report 12743254 (Version 1)
Quarter: 2016Q3

REPORT INFORMATION
  Report Type: Report from Study
  Country: DE (occurrence: DE)
  Receive Date: 20160914
  Receipt Date: 20160914
  Transmission Date: 20161109
  Serious: Yes (Hospitalization)
  Sender: FDA-Public Use
  Company Number: US-ASTRAZENECA-2016SE97145

PATIENT
  Sex: Male

DRUGS (2)
  1. SYNAGIS [Suspect]
     Active Substance: PALIVIZUMAB
     Indication: ANTIVIRAL PROPHYLAXIS
     Dosage: 80.0MG ONCE/SINGLE ADMINISTRATION
     Route: 030
     Dates: start: 20070219, end: 20070219
  2. SYNAGIS [Suspect]
     Active Substance: PALIVIZUMAB
     Indication: ANTIVIRAL PROPHYLAXIS
     Dosage: 60.0MG ONCE/SINGLE ADMINISTRATION
     Route: 030
     Dates: start: 20061130, end: 20061130

REACTIONS (2)
  - Pneumonia viral [Unknown]
  - Respiratory syncytial virus infection [Unknown]
